FAERS Safety Report 23836014 (Version 1)
Quarter: 2024Q2

REPORT INFORMATION
  Report Type: Spontaneous
  Country: US (occurrence: None)
  Receive Date: 20240508
  Receipt Date: 20240508
  Transmission Date: 20240716
  Serious: Yes (Life-Threatening, Hospitalization)
  Sender: FDA-Public Use
  Company Number: None

PATIENT
  Age: 24 Year
  Sex: Female
  Weight: 97.2 kg

DRUGS (1)
  1. DUPIXENT [Suspect]
     Active Substance: DUPILUMAB
     Indication: Dermatitis atopic
     Dates: start: 20230710, end: 20240331

REACTIONS (4)
  - Nausea [None]
  - Vomiting [None]
  - T-cell lymphoma [None]
  - Paraneoplastic syndrome [None]

NARRATIVE: CASE EVENT DATE: 20240430
